FAERS Safety Report 6964349-0 (Version None)
Quarter: 2010Q3

REPORT INFORMATION
  Report Type: 
  Country: None (occurrence: None)
  Receive Date: 20100903
  Receipt Date: 20100824
  Transmission Date: 20110219
  Serious: No
  Sender: FDA-Public Use
  Company Number: 2008BI009557

PATIENT
  Sex: Female

DRUGS (1)
  1. TYSABRI [Suspect]
     Indication: MULTIPLE SCLEROSIS
     Route: 042
     Dates: start: 20071227

REACTIONS (10)
  - COGNITIVE DISORDER [None]
  - DIABETES MELLITUS [None]
  - IRRITABILITY [None]
  - MEMORY IMPAIRMENT [None]
  - MUSCULOSKELETAL DISORDER [None]
  - PARAESTHESIA [None]
  - PERSONALITY CHANGE [None]
  - RENAL DISORDER [None]
  - RENAL FAILURE CHRONIC [None]
  - STRESS [None]
